FAERS Safety Report 8427734-6 (Version None)
Quarter: 2012Q2

REPORT INFORMATION
  Report Type: 
  Country: None (occurrence: None)
  Receive Date: 20120611
  Receipt Date: 20120529
  Transmission Date: 20120825
  Serious: Yes (Death, Hospitalization, Other)
  Sender: FDA-Public Use
  Company Number: ES-CELGENEUS-144-50794-12052367

PATIENT
  Age: 76 Year
  Sex: Male

DRUGS (10)
  1. VIDAZA [Suspect]
     Dosage: 75 MILLIGRAM/SQ. METER
     Route: 065
     Dates: start: 20101123
  2. EPREX [Concomitant]
     Indication: SUPPORTIVE CARE
     Route: 065
     Dates: start: 20090923, end: 20091211
  3. VIDAZA [Suspect]
     Dosage: 75 MILLIGRAM/SQ. METER
     Route: 065
     Dates: start: 20090720
  4. RED BLOOD CELLS [Concomitant]
     Route: 041
     Dates: start: 20090817, end: 20090921
  5. RED BLOOD CELLS [Concomitant]
     Route: 041
     Dates: end: 20110211
  6. RED BLOOD CELLS [Concomitant]
     Indication: SUPPORTIVE CARE
     Route: 041
     Dates: end: 20110211
  7. RED BLOOD CELLS [Concomitant]
     Route: 041
     Dates: start: 20090720, end: 20090817
  8. EXJADE [Concomitant]
     Route: 065
     Dates: end: 20100501
  9. RED BLOOD CELLS [Concomitant]
     Route: 041
     Dates: start: 20090921, end: 20091026
  10. EXJADE [Concomitant]
     Dosage: 1500 MILLIGRAM
     Route: 065
     Dates: start: 20090824, end: 20091002

REACTIONS (7)
  - CARDIAC FAILURE [None]
  - PNEUMONIA [None]
  - DEATH [None]
  - TRANSAMINASES INCREASED [None]
  - INJECTION SITE RASH [None]
  - SMALL CELL LUNG CANCER STAGE UNSPECIFIED [None]
  - LUNG INFECTION PSEUDOMONAL [None]
